FAERS Safety Report 6012691-2 (Version None)
Quarter: 2008Q4

REPORT INFORMATION
  Report Type: 
  Country: None (occurrence: None)
  Receive Date: 20081218
  Receipt Date: 20081210
  Transmission Date: 20090506
  Serious: Yes (Disabling)
  Sender: FDA-Public Use
  Company Number: PL-AMGEN-UK318103

PATIENT
  Sex: Female
  Weight: 98 kg

DRUGS (9)
  1. KINERET [Suspect]
     Indication: OSTEOARTHRITIS
     Route: 058
     Dates: start: 20081006, end: 20081103
  2. KINERET [Suspect]
     Indication: OSTEOPOROSIS
  3. METHOTREXATE [Concomitant]
     Route: 048
  4. OROCAL VITAMIN D [Concomitant]
     Route: 048
     Dates: start: 20080409
  5. DICLOFENAC SODIUM [Concomitant]
     Route: 048
     Dates: start: 20080401
  6. METYPRED [Concomitant]
     Route: 048
     Dates: start: 20081001
  7. ACIDUM FOLICUM [Concomitant]
     Route: 048
  8. PANCREATIN [Concomitant]
  9. HOMEOPATHIC PREPARATION [Concomitant]

REACTIONS (6)
  - ERYTHEMA [None]
  - HYPERSENSITIVITY [None]
  - JOINT EFFUSION [None]
  - PRURITUS [None]
  - RASH [None]
  - SWELLING [None]
